FAERS Safety Report 17079717 (Version 1)
Quarter: 2019Q4

REPORT INFORMATION
  Report Type: Spontaneous
  Country: US (occurrence: US)
  Receive Date: 20191127
  Receipt Date: 20191127
  Transmission Date: 20200122
  Serious: No
  Sender: FDA-Public Use
  Company Number: US-ASTRAZENECA-2019SF54588

PATIENT
  Sex: Male
  Weight: 79.4 kg

DRUGS (1)
  1. SYMBICORT [Suspect]
     Active Substance: BUDESONIDE\FORMOTEROL FUMARATE DIHYDRATE
     Dosage: 120 INHALATIONS
     Route: 055

REACTIONS (5)
  - Product dose omission [Unknown]
  - Device failure [Unknown]
  - Cough [Unknown]
  - Sneezing [Unknown]
  - Product use issue [Unknown]
